FAERS Safety Report 18376798 (Version 2)
Quarter: 2021Q1

REPORT INFORMATION
  Report Type: Spontaneous
  Country: US (occurrence: US)
  Receive Date: 20201013
  Receipt Date: 20210101
  Transmission Date: 20210419
  Serious: Yes (Death, Hospitalization, Other)
  Sender: FDA-Public Use
  Company Number: US-AMGEN-USASP2020162969

PATIENT

DRUGS (11)
  1. DARBEPOETIN ALFA [Suspect]
     Active Substance: DARBEPOETIN ALFA
     Indication: ANAEMIA POSTOPERATIVE
     Dosage: UNK
     Route: 065
  2. KCENTRA [Concomitant]
     Active Substance: COAGULATION FACTOR IX HUMAN\COAGULATION FACTOR VII HUMAN\COAGULATION FACTOR X HUMAN\PROTEIN C\PROTEIN S HUMAN\PROTHROMBIN
     Indication: ANAEMIA
     Dosage: UNK
  3. CYANOCOBALAMIN. [Concomitant]
     Active Substance: CYANOCOBALAMIN
     Indication: ANAEMIA POSTOPERATIVE
     Dosage: UNK
  4. FOLIC ACID. [Concomitant]
     Active Substance: FOLIC ACID
     Indication: ANAEMIA POSTOPERATIVE
     Dosage: UNK
  5. EPOETIN ALFA [Suspect]
     Active Substance: ERYTHROPOIETIN
     Indication: ANAEMIA
     Dosage: 20000 UNIT, QD
     Route: 065
  6. DESMOPRESSIN [Concomitant]
     Active Substance: DESMOPRESSIN
     Dosage: UNK
  7. FERRIC GLUCONATE TRIHYDRATE [Concomitant]
     Indication: ANAEMIA POSTOPERATIVE
     Dosage: UNK
     Route: 042
  8. FERROUS SULFATE. [Concomitant]
     Active Substance: FERROUS SULFATE
     Indication: ANAEMIA POSTOPERATIVE
     Dosage: UNK
     Route: 048
  9. AMINOCAPROIC ACID. [Concomitant]
     Active Substance: AMINOCAPROIC ACID
     Dosage: UNK
  10. PROTAMINE [Concomitant]
     Active Substance: PROTAMINE
     Dosage: UNK
  11. FIBRINOGEN [Concomitant]
     Active Substance: FIBRINOGEN HUMAN
     Dosage: UNK

REACTIONS (18)
  - Ventricular arrhythmia [Fatal]
  - Ischaemic stroke [Unknown]
  - Acute kidney injury [Unknown]
  - Fibrin D dimer increased [Unknown]
  - Deep vein thrombosis [Unknown]
  - Embolism [Unknown]
  - Haemorrhage [Unknown]
  - Cardiac arrest [Unknown]
  - Platelet count decreased [Unknown]
  - Post procedural complication [Unknown]
  - Haematocrit decreased [Unknown]
  - International normalised ratio increased [Unknown]
  - Circulatory collapse [Fatal]
  - Atrial fibrillation [Unknown]
  - Haemoglobin decreased [Unknown]
  - Blood fibrinogen decreased [Unknown]
  - Off label use [Unknown]
  - Liver injury [Unknown]
